FAERS Safety Report 21621339 (Version 1)
Quarter: 2022Q4

REPORT INFORMATION
  Report Type: Spontaneous
  Country: US (occurrence: None)
  Receive Date: 20221118
  Receipt Date: 20221118
  Transmission Date: 20230113
  Serious: No
  Sender: FDA-Public Use
  Company Number: None

PATIENT
  Age: 64 Year
  Sex: Female

DRUGS (1)
  1. H.P. ACTHAR [Suspect]
     Active Substance: CORTICOTROPIN
     Indication: Ankylosing spondylitis
     Dosage: OTHER QUANTITY : 40 UNITS (0.5ML);?FREQUENCY : AS DIRECTED;?
     Route: 058
     Dates: start: 202204

REACTIONS (3)
  - Malaise [None]
  - Therapy interrupted [None]
  - Influenza [None]
